FAERS Safety Report 7701724-0 (Version None)
Quarter: 2011Q3

REPORT INFORMATION
  Report Type: 
  Country: None (occurrence: None)
  Receive Date: 20110822
  Receipt Date: 20110816
  Transmission Date: 20111222
  Serious: Yes (Other)
  Sender: FDA-Public Use
  Company Number: US-BAYER-2011-074829

PATIENT
  Age: 14 Year
  Sex: Female
  Weight: 72.562 kg

DRUGS (3)
  1. YAZ [Suspect]
     Indication: CONTRACEPTION
     Dosage: UNK
     Dates: start: 20100801, end: 20100901
  2. YAZ [Suspect]
     Indication: ACNE
  3. PROAIR HFA [Concomitant]
     Indication: ASTHMA

REACTIONS (2)
  - DEEP VEIN THROMBOSIS [None]
  - THROMBOSIS [None]
